FAERS Safety Report 21259426 (Version 1)
Quarter: 2022Q3

REPORT INFORMATION
  Report Type: Spontaneous
  Country: US (occurrence: None)
  Receive Date: 20220825
  Receipt Date: 20220825
  Transmission Date: 20221026
  Serious: No
  Sender: FDA-Public Use
  Company Number: None

PATIENT
  Age: 64 Year
  Sex: Male
  Weight: 84.37 kg

DRUGS (10)
  1. CAPECITABINE [Suspect]
     Active Substance: CAPECITABINE
     Indication: Colon cancer
     Dosage: FREQUENCY : TWICE A DAY;?
     Route: 048
     Dates: start: 202010
  2. ATORVASTATIN CALCIUM [Concomitant]
  3. BACLOFEN [Concomitant]
  4. ELIQUIS [Concomitant]
  5. GLIMEPIRIDE [Concomitant]
  6. LISINOPRIL [Concomitant]
  7. MAGICMOUTHWASH [Concomitant]
  8. METFORMIN HCI [Concomitant]
  9. TRAMADOL HCI [Concomitant]
  10. ZOFRAN [Concomitant]

REACTIONS (1)
  - Drug ineffective [None]
